FAERS Safety Report 9175492 (Version 1)
Quarter: 2013Q1

REPORT INFORMATION
  Report Type: Spontaneous
  Country: US (occurrence: US)
  Receive Date: 20130320
  Receipt Date: 20130320
  Transmission Date: 20140127
  Serious: Yes (Other)
  Sender: FDA-Public Use
  Company Number: US-ROCHE-784990

PATIENT
  Age: 57 Year
  Sex: Male
  Weight: 74.91 kg

DRUGS (2)
  1. ACCUTANE [Suspect]
     Indication: ACNE
     Route: 048
     Dates: start: 200002, end: 200006
  2. AMNESTEEM [Suspect]
     Indication: ACNE
     Route: 048
     Dates: start: 20040107, end: 200404

REACTIONS (3)
  - Colitis ulcerative [Unknown]
  - Inflammatory bowel disease [Unknown]
  - Large intestine polyp [Unknown]
